FAERS Safety Report 23147481 (Version 1)
Quarter: 2023Q4

REPORT INFORMATION
  Report Type: Spontaneous
  Country: US (occurrence: US)
  Receive Date: 20231106
  Receipt Date: 20231106
  Transmission Date: 20240110
  Serious: No
  Sender: FDA-Public Use
  Company Number: US-Nobelpharma America, LLC-NPA-2023-02108

PATIENT
  Sex: Male

DRUGS (2)
  1. HYFTOR [Suspect]
     Active Substance: SIROLIMUS
     Indication: Angiofibroma
     Dosage: APPLY 300MG (APPROXIMATELY 1 CM STRIP IN LENGTH) TOPICALLY TO AFFECTED AREA OF THE FACE TWICE DAILY
     Dates: start: 20230803
  2. HYFTOR [Suspect]
     Active Substance: SIROLIMUS
     Indication: Tuberous sclerosis complex

REACTIONS (1)
  - Dry skin [Unknown]
